FAERS Safety Report 9602965 (Version 2)
Quarter: 2013Q4

REPORT INFORMATION
  Report Type: Spontaneous
  Country: US (occurrence: US)
  Receive Date: 20131007
  Receipt Date: 20131008
  Transmission Date: 20140711
  Serious: Yes (Other)
  Sender: FDA-Public Use
  Company Number: US-ROCHE-1284738

PATIENT
  Age: 66 Year
  Sex: Female
  Weight: 117.59 kg

DRUGS (17)
  1. XOLAIR [Suspect]
     Indication: ASTHMA
     Route: 058
     Dates: start: 20130912
  2. SPIRIVA [Concomitant]
     Indication: ASTHMA
     Route: 050
     Dates: start: 20111212
  3. ALBUTEROL [Concomitant]
     Dosage: 2.5 MG/3 ML, AS REQUIRED
     Route: 065
     Dates: start: 20111027
  4. ADVAIR [Concomitant]
     Indication: ASTHMA
     Dosage: 1 PUFF BID
     Route: 050
     Dates: start: 20111027
  5. SINGULAIR [Concomitant]
     Route: 048
     Dates: start: 20111027
  6. CLARITIN [Concomitant]
     Route: 048
  7. TRIAMCINOLONE [Concomitant]
     Dosage: 1 SPARY EVERY DAY
     Route: 065
     Dates: start: 20130808
  8. HYDROCHLOROTHIAZIDE [Concomitant]
     Indication: HYPERTENSION
     Route: 065
     Dates: start: 20130808
  9. LEVOTHYROXINE [Concomitant]
     Indication: HYPOTHYROIDISM
     Route: 065
     Dates: start: 20130808
  10. VENLAFAXINE [Concomitant]
     Route: 065
     Dates: start: 20130808
  11. LOSARTAN [Concomitant]
     Indication: HYPERTENSION
     Route: 065
     Dates: start: 20130808
  12. ATENOLOL [Concomitant]
     Indication: HYPERTENSION
     Route: 065
     Dates: start: 20130808
  13. POTASSIUM CHLORIDE [Concomitant]
     Route: 065
     Dates: start: 20111027
  14. HYDROCODONE/APAP [Concomitant]
     Indication: PAIN
     Dosage: 7.5/325 MG, AS REQUIRED
     Route: 048
     Dates: start: 20130808
  15. PATANOL [Concomitant]
     Indication: HYPERSENSITIVITY
     Dosage: 1 TO 2 DROPS PER EYE BID
     Route: 065
     Dates: start: 20130927
  16. VENTOLIN [Concomitant]
     Dosage: 2 PUFFS EVERY 4 TO 6 HOURS AS REQUIRED
     Route: 050
     Dates: start: 20130808
  17. HYDROCORTISONE [Concomitant]
     Indication: ECZEMA
     Route: 065
     Dates: start: 20111027

REACTIONS (2)
  - Feeling hot [Recovered/Resolved]
  - Throat irritation [Recovered/Resolved]
